FAERS Safety Report 11868611 (Version 1)
Quarter: 2015Q4

REPORT INFORMATION
  Report Type: Spontaneous
  Country: FR (occurrence: FR)
  Receive Date: 20151225
  Receipt Date: 20151225
  Transmission Date: 20160305
  Serious: Yes (Hospitalization, Other)
  Sender: FDA-Public Use
  Company Number: FR-BRISTOL-MYERS SQUIBB COMPANY-12167631

PATIENT
  Age: 36 Year
  Sex: Female

DRUGS (3)
  1. DIDANOSINE. [Suspect]
     Active Substance: DIDANOSINE
     Indication: HIV INFECTION
     Dosage: UNK
     Route: 065
  2. STAVUDINE. [Suspect]
     Active Substance: STAVUDINE
     Indication: HIV INFECTION
     Dosage: UNK
     Route: 065
  3. EFAVIRENZ [Suspect]
     Active Substance: EFAVIRENZ
     Indication: HIV INFECTION
     Dosage: UNK
     Route: 065

REACTIONS (9)
  - Pancreatitis necrotising [Unknown]
  - Cellulitis gangrenous [Unknown]
  - Caesarean section [Unknown]
  - Premature delivery [Unknown]
  - Abdominal pain upper [Unknown]
  - Uterine hypertonus [Unknown]
  - Hepatic steatosis [Unknown]
  - Lactic acidosis [Recovered/Resolved]
  - Pregnancy [Recovered/Resolved]
